FAERS Safety Report 4964698-1 (Version None)
Quarter: 2006Q1

REPORT INFORMATION
  Report Type: 
  Country: None (occurrence: None)
  Receive Date: 20060331
  Receipt Date: 20060314
  Transmission Date: 20060701
  Serious: No
  Sender: FDA-Public Use
  Company Number: NZ200603006166

PATIENT
  Age: 18 Year
  Sex: Female

DRUGS (2)
  1. ZYPREXA [Suspect]
  2. CLONAZEPAM [Concomitant]

REACTIONS (1)
  - NEUTROPENIA [None]
